FAERS Safety Report 5556841-0 (Version None)
Quarter: 2007Q4

REPORT INFORMATION
  Report Type: 
  Country: None (occurrence: None)
  Receive Date: 20071210
  Receipt Date: 20071210
  Transmission Date: 20080405
  Serious: No
  Sender: FDA-Public Use
  Company Number: None

PATIENT
  Age: 80 Year
  Sex: Male

DRUGS (1)
  1. ERYTHROMYCIN OPTHALMIC [Suspect]
     Dosage: 0.5%DROPS BID EYE
     Route: 047
     Dates: start: 20070929

REACTIONS (1)
  - EYE IRRITATION [None]
